FAERS Safety Report 7273021-1 (Version None)
Quarter: 2011Q1

REPORT INFORMATION
  Report Type: 
  Country: None (occurrence: None)
  Receive Date: 20110203
  Receipt Date: 20110125
  Transmission Date: 20110831
  Serious: Yes (Hospitalization)
  Sender: FDA-Public Use
  Company Number: B0696906A

PATIENT
  Age: 26 Year
  Sex: Female

DRUGS (1)
  1. AUGMENTIN '125' [Suspect]
     Dosage: 1TAB PER DAY
     Route: 065

REACTIONS (4)
  - DRUG HYPERSENSITIVITY [None]
  - RASH GENERALISED [None]
  - MUSCULOSKELETAL STIFFNESS [None]
  - MENINGITIS [None]
